FAERS Safety Report 9981019 (Version 2)
Quarter: 2014Q1

REPORT INFORMATION
  Report Type: Report from Study
  Country: LB (occurrence: LB)
  Receive Date: 20140307
  Receipt Date: 20140321
  Transmission Date: 20141002
  Serious: Yes (Other)
  Sender: FDA-Public Use
  Company Number: LB-US-EMD SERONO, INC.-7272209

PATIENT
  Age: 53 Year
  Sex: Female

DRUGS (2)
  1. REBIF [Suspect]
     Indication: MULTIPLE SCLEROSIS
     Dates: start: 200807
  2. REBIF [Suspect]
     Dates: start: 20140224

REACTIONS (1)
  - Nephrotic syndrome [Unknown]
